FAERS Safety Report 24188710 (Version 1)
Quarter: 2024Q3

REPORT INFORMATION
  Report Type: Spontaneous
  Country: US (occurrence: US)
  Receive Date: 20240808
  Receipt Date: 20240808
  Transmission Date: 20241017
  Serious: No
  Sender: OTSUKA
  Company Number: US-OTSUKA-2023_030190

PATIENT
  Age: 93 Year
  Sex: Male
  Weight: 86.7 kg

DRUGS (2)
  1. ABILIFY [Suspect]
     Active Substance: ARIPIPRAZOLE
     Indication: Delirium
     Dosage: 5 MG, QD (NIGHTLY)
     Route: 065
     Dates: start: 20231116
  2. ABILIFY [Suspect]
     Active Substance: ARIPIPRAZOLE
     Indication: Metabolic encephalopathy

REACTIONS (1)
  - Off label use [Unknown]

NARRATIVE: CASE EVENT DATE: 20231116
